FAERS Safety Report 10133958 (Version 1)
Quarter: 2014Q2

REPORT INFORMATION
  Report Type: Spontaneous
  Country: US (occurrence: US)
  Receive Date: 20140428
  Receipt Date: 20140428
  Transmission Date: 20141212
  Serious: Yes (Life-Threatening, Hospitalization, Other)
  Sender: FDA-Public Use
  Company Number: PHHY2014US048947

PATIENT
  Sex: Male

DRUGS (9)
  1. LIORESAL INTRATECAL [Suspect]
     Indication: MUSCLE SPASTICITY
     Dosage: UNK UKN, UNK
     Route: 037
  2. LIORESAL INTRATECAL [Suspect]
     Dosage: 725 UG/DAY
     Route: 037
  3. LIORESAL INTRATECAL [Suspect]
     Dosage: 96 UG/DAY
     Route: 037
  4. LIORESAL INTRATECAL [Suspect]
     Dosage: UNK UKN, UNK
     Route: 037
     Dates: end: 20140129
  5. LANSOPRAZOLE [Suspect]
     Dosage: UNK UKN, UNK
  6. PEPCID [Suspect]
     Dosage: UNK UKN, UNK
  7. KEPPRA [Suspect]
     Dosage: UNK UKN, UNK
  8. DOCUSATE [Suspect]
     Dosage: UNK UKN, UNK
  9. PHENOBARBITAL [Suspect]
     Dosage: UNK UKN, UNK

REACTIONS (12)
  - Unresponsive to stimuli [Unknown]
  - Bradycardia [Unknown]
  - Hypotension [Unknown]
  - Lethargy [Unknown]
  - Implant site extravasation [Unknown]
  - Implant site swelling [Unknown]
  - Respiratory rate decreased [Unknown]
  - Respiratory depression [Unknown]
  - Hypopnoea [Unknown]
  - Incorrect route of drug administration [Unknown]
  - Overdose [Unknown]
  - Drug withdrawal syndrome [Unknown]
